FAERS Safety Report 7414295-3 (Version None)
Quarter: 2011Q2

REPORT INFORMATION
  Report Type: 
  Country: None (occurrence: None)
  Receive Date: 20110411
  Receipt Date: 20110411
  Transmission Date: 20111010
  Serious: No
  Sender: FDA-Public Use
  Company Number: None

PATIENT
  Sex: Male

DRUGS (1)
  1. HUMIRA 40MG EVERY 2 WEEKS SUBCUTANEOUSLY [Suspect]
     Indication: PSORIASIS
     Dosage: 40MG EVERY 2 WEEKS SUBCUTANEOUSLY
     Route: 058
     Dates: start: 20110116, end: 20110331

REACTIONS (1)
  - SWELLING FACE [None]
